FAERS Safety Report 7991937-5 (Version None)
Quarter: 2011Q4

REPORT INFORMATION
  Report Type: 
  Country: None (occurrence: None)
  Receive Date: 20111219
  Receipt Date: 20110414
  Transmission Date: 20120403
  Serious: Yes (Hospitalization)
  Sender: FDA-Public Use
  Company Number: US-ASTRAZENECA-2011SE21456

PATIENT
  Age: 73 Year

DRUGS (3)
  1. CINNAMON [Concomitant]
     Route: 048
  2. CRESTOR [Suspect]
     Indication: HYPERCHOLESTEROLAEMIA
     Route: 048
     Dates: start: 20110315, end: 20110404
  3. FISH OIL [Concomitant]
     Dosage: BID
     Route: 048

REACTIONS (1)
  - RHABDOMYOLYSIS [None]
